FAERS Safety Report 5146102-6 (Version None)
Quarter: 2006Q4

REPORT INFORMATION
  Report Type: 
  Country: None (occurrence: None)
  Receive Date: 20061108
  Receipt Date: 20061030
  Transmission Date: 20070319
  Serious: Yes (Hospitalization)
  Sender: FDA-Public Use
  Company Number: SE-JNJFOC-20061100105

PATIENT
  Age: 62 Year
  Sex: Male

DRUGS (5)
  1. REMICADE [Suspect]
     Indication: PSORIATIC ARTHROPATHY
     Route: 042
  2. BISOPROLOL FUMARATE [Concomitant]
     Route: 065
  3. ACETAMINOPHEN [Concomitant]
     Dosage: 1.5-4.0 G
     Route: 065
  4. SIMVASTATIN [Concomitant]
     Route: 065
  5. TROMBYL [Concomitant]
     Route: 065

REACTIONS (3)
  - CHEST PAIN [None]
  - CORONARY ARTERY STENOSIS [None]
  - CORONARY OSTIAL STENOSIS [None]
